FAERS Safety Report 8579395-3 (Version None)
Quarter: 2012Q3

REPORT INFORMATION
  Report Type: 
  Country: None (occurrence: None)
  Receive Date: 20120808
  Receipt Date: 20120730
  Transmission Date: 20120928
  Serious: Yes (Other)
  Sender: FDA-Public Use
  Company Number: NL-AMGEN-NLDSP2012048992

PATIENT
  Age: 80 Year
  Sex: Female

DRUGS (2)
  1. ARCOXIA [Concomitant]
     Dosage: UNK
  2. ENBREL [Suspect]
     Indication: RHEUMATOID ARTHRITIS
     Dosage: 50 MG, WEEKLY
     Route: 065
     Dates: start: 20100101

REACTIONS (3)
  - DIABETES MELLITUS [None]
  - MUSCULOSKELETAL DISCOMFORT [None]
  - ALOPECIA [None]
